FAERS Safety Report 15858965 (Version 1)
Quarter: 2019Q1

REPORT INFORMATION
  Report Type: Other
  Country: US (occurrence: US)
  Receive Date: 20190123
  Receipt Date: 20190123
  Transmission Date: 20190417
  Serious: No
  Sender: FDA-Public Use
  Company Number: US-CMP PHARMA-2018CMP00029

PATIENT
  Age: 64 Year
  Sex: Female
  Weight: 56.69 kg

DRUGS (15)
  1. CLONIDINE. [Concomitant]
     Active Substance: CLONIDINE
  2. DILTIAZEM. [Concomitant]
     Active Substance: DILTIAZEM
  3. CARVEDILOL. [Concomitant]
     Active Substance: CARVEDILOL
  4. FUROSEMIDE. [Concomitant]
     Active Substance: FUROSEMIDE
  5. URSODIOL. [Concomitant]
     Active Substance: URSODIOL
  6. COLACE [Concomitant]
     Active Substance: DOCUSATE SODIUM
  7. IRON [Concomitant]
     Active Substance: IRON
  8. SPS [Suspect]
     Active Substance: SODIUM POLYSTYRENE SULFONATE
     Dosage: 30 ML, ONCE
     Route: 048
     Dates: start: 20180706, end: 20180706
  9. FEBUXOSTAT. [Concomitant]
     Active Substance: FEBUXOSTAT
  10. CREON [Concomitant]
     Active Substance: PANCRELIPASE AMYLASE\PANCRELIPASE LIPASE\PANCRELIPASE PROTEASE
  11. AMLODIPINE [Concomitant]
     Active Substance: AMLODIPINE BESYLATE
  12. TACROLIMUS. [Concomitant]
     Active Substance: TACROLIMUS
  13. SODIUM BICARBONATE. [Concomitant]
     Active Substance: SODIUM BICARBONATE
  14. PRAVASTATIN. [Concomitant]
     Active Substance: PRAVASTATIN
  15. SPS [Suspect]
     Active Substance: SODIUM POLYSTYRENE SULFONATE
     Indication: BLOOD POTASSIUM INCREASED
     Dosage: 60 ML, ONCE
     Route: 048
     Dates: start: 20180705, end: 20180706

REACTIONS (3)
  - Diarrhoea [Unknown]
  - Drug ineffective [Recovered/Resolved]
  - Blood potassium increased [Recovering/Resolving]

NARRATIVE: CASE EVENT DATE: 201807
